FAERS Safety Report 13108198 (Version 2)
Quarter: 2017Q1

REPORT INFORMATION
  Report Type: Spontaneous
  Country: US (occurrence: US)
  Receive Date: 20170112
  Receipt Date: 20170222
  Transmission Date: 20170428
  Serious: Yes (Other)
  Sender: FDA-Public Use
  Company Number: US-009507513-1701USA003673

PATIENT
  Age: 45 Year
  Sex: Female

DRUGS (1)
  1. ASMANEX [Suspect]
     Active Substance: MOMETASONE FUROATE
     Indication: SARCOIDOSIS
     Dosage: ONE INHALATION ONCE A DAY
     Route: 055

REACTIONS (6)
  - Drug dose omission [Unknown]
  - Product use issue [Unknown]
  - No adverse event [Unknown]
  - Poor quality drug administered [Unknown]
  - Product contamination microbial [Unknown]
  - Product physical issue [Unknown]

NARRATIVE: CASE EVENT DATE: 20170105
